FAERS Safety Report 6921862-X (Version None)
Quarter: 2010Q3

REPORT INFORMATION
  Report Type: 
  Country: None (occurrence: None)
  Receive Date: 20100812
  Receipt Date: 20100804
  Transmission Date: 20110219
  Serious: Yes (Other)
  Sender: FDA-Public Use
  Company Number: US-AMGEN-KDC426369

PATIENT
  Sex: Female

DRUGS (12)
  1. DENOSUMAB [Suspect]
     Indication: OSTEOPOROSIS POSTMENOPAUSAL
     Route: 058
     Dates: start: 20080122
  2. NORVASC [Concomitant]
  3. PINDOLOL [Concomitant]
  4. LEVOTHYROXINE [Concomitant]
  5. SYMBICORT [Concomitant]
  6. HYDROXYZINE [Concomitant]
  7. MULTI-VITAMINS [Concomitant]
  8. CALCIUM [Concomitant]
  9. VITAMIN D [Concomitant]
  10. COMBIVENT [Concomitant]
  11. FLUTICASONE PROPIONATE [Concomitant]
  12. METAMUCIL-2 [Concomitant]

REACTIONS (1)
  - MYCOBACTERIUM AVIUM COMPLEX INFECTION [None]
